FAERS Safety Report 6273428-5 (Version None)
Quarter: 2009Q3

REPORT INFORMATION
  Report Type: 
  Country: None (occurrence: None)
  Receive Date: 20090720
  Receipt Date: 20090715
  Transmission Date: 20100115
  Serious: Yes (Hospitalization)
  Sender: FDA-Public Use
  Company Number: FR-WYE-G04055409

PATIENT
  Age: 35 Year
  Sex: Female

DRUGS (1)
  1. ADVIL [Suspect]
     Indication: INFLUENZA
     Dosage: UNKNOWN
     Route: 048
     Dates: start: 20090325, end: 20090326

REACTIONS (2)
  - LOBAR PNEUMONIA [None]
  - RENAL FAILURE ACUTE [None]
